FAERS Safety Report 6412663-X (Version None)
Quarter: 2009Q4

REPORT INFORMATION
  Report Type: 
  Country: None (occurrence: None)
  Receive Date: 20091023
  Receipt Date: 20091016
  Transmission Date: 20100525
  Serious: Yes (Hospitalization)
  Sender: FDA-Public Use
  Company Number: PHHO2007US16309

PATIENT
  Sex: Male
  Weight: 86.3 kg

DRUGS (13)
  1. BLINDED NO TREATMENT RECEIVED NOMED [Suspect]
     Indication: GLUCOSE TOLERANCE IMPAIRED
     Dosage: LEVEL 1
     Route: 048
     Dates: start: 20031129
  2. BLINDED PLACEBO PLACEBO [Suspect]
     Indication: GLUCOSE TOLERANCE IMPAIRED
     Dosage: LEVEL 1
     Route: 048
     Dates: start: 20031129
  3. STARLIX [Suspect]
     Indication: GLUCOSE TOLERANCE IMPAIRED
     Dosage: LEVEL 1
     Route: 048
     Dates: start: 20031129
  4. BLINDED NO TREATMENT RECEIVED NOMED [Suspect]
     Dosage: LEVEL 2
     Route: 048
  5. BLINDED PLACEBO PLACEBO [Suspect]
     Dosage: LEVEL 2
     Route: 048
  6. STARLIX [Suspect]
     Dosage: LEVEL 2
     Route: 048
  7. PLACEBO OR VALSARTAN [Suspect]
     Indication: CARDIOVASCULAR DISORDER
     Dosage: LEVEL 1
     Route: 048
     Dates: start: 20031129
  8. PLACEBO OR VALSARTAN [Suspect]
     Dosage: LEVEL 2
     Route: 048
  9. COUMADIN [Concomitant]
  10. CLONIDINE [Concomitant]
  11. METFORMIN HCL [Concomitant]
  12. TOPROL-XL [Concomitant]
  13. CRESTOR [Concomitant]

REACTIONS (10)
  - ABDOMINAL PAIN [None]
  - BLOOD UREA INCREASED [None]
  - DIARRHOEA [None]
  - DIZZINESS [None]
  - FALL [None]
  - GASTROENTERITIS [None]
  - NECK PAIN [None]
  - PRESYNCOPE [None]
  - URINARY TRACT INFECTION [None]
  - VOMITING [None]
